FAERS Safety Report 10503946 (Version 1)
Quarter: 2014Q4

REPORT INFORMATION
  Report Type: Spontaneous
  Country: US (occurrence: None)
  Receive Date: 20141007
  Receipt Date: 20141007
  Transmission Date: 20150528
  Serious: Yes (Life-Threatening, Hospitalization, Disabling)
  Sender: FDA-Public Use
  Company Number: None

PATIENT
  Age: 23 Year
  Sex: Female
  Weight: 56.7 kg

DRUGS (1)
  1. HUMIRA [Suspect]
     Active Substance: ADALIMUMAB
     Indication: CROHN^S DISEASE
     Dosage: 1 PRE-FILLED SYRINGE EVERY OTHER WEEK GIVEN INTO/UNDER THE SKIN
     Dates: start: 20120801, end: 20140430

REACTIONS (14)
  - Rash pustular [None]
  - Pneumonia [None]
  - Deep vein thrombosis [None]
  - Deafness [None]
  - Meningitis [None]
  - Sinusitis [None]
  - Labyrinthitis [None]
  - Cellulitis orbital [None]
  - Eye infection [None]
  - Mastoiditis [None]
  - Eye pain [None]
  - Dermatitis acneiform [None]
  - Upper respiratory tract infection [None]
  - Ear infection [None]

NARRATIVE: CASE EVENT DATE: 20140904
